FAERS Safety Report 7107786-6 (Version None)
Quarter: 2010Q4

REPORT INFORMATION
  Report Type: 
  Country: None (occurrence: None)
  Receive Date: 20101117
  Receipt Date: 20101104
  Transmission Date: 20110411
  Serious: Yes (Other)
  Sender: FDA-Public Use
  Company Number: PHHY2010IN75097

PATIENT
  Sex: Female

DRUGS (3)
  1. CARBAMAZEPINE [Suspect]
     Indication: EPILEPSY
     Dosage: 400 MG
  2. DIVALPROEX SODIUM [Suspect]
     Indication: EPILEPSY
     Dosage: 500 MG
  3. CLOBAZAM [Suspect]
     Indication: EPILEPSY
     Dosage: 10 MG

REACTIONS (11)
  - ANKLE FRACTURE [None]
  - DRUG EXPOSURE DURING PREGNANCY [None]
  - FALL [None]
  - HAEMOGLOBIN DECREASED [None]
  - HEART RATE INCREASED [None]
  - HUMERUS FRACTURE [None]
  - INTRA-UTERINE DEATH [None]
  - JOINT DISLOCATION [None]
  - PAIN [None]
  - SPINAL FRACTURE [None]
  - TWIN PREGNANCY [None]
